FAERS Safety Report 6155638-0 (Version None)
Quarter: 2009Q2

REPORT INFORMATION
  Report Type: 
  Country: None (occurrence: None)
  Receive Date: 20090413
  Receipt Date: 20090331
  Transmission Date: 20091009
  Serious: Yes (Other)
  Sender: FDA-Public Use
  Company Number: 8037840

PATIENT
  Sex: Male

DRUGS (4)
  1. KEPPRA [Suspect]
     Indication: CONVULSION
     Dosage: 1000 MG /D, TRP
     Route: 064
     Dates: start: 20070701, end: 20080304
  2. PRENATAL VITAMINSS [Concomitant]
  3. PYRIDOXINE HCL [Concomitant]
  4. CARBATROL [Concomitant]

REACTIONS (3)
  - MATERNAL DRUGS AFFECTING FOETUS [None]
  - SMALL FOR DATES BABY [None]
  - WEIGHT GAIN POOR [None]
